FAERS Safety Report 8185656-2 (Version None)
Quarter: 2012Q1

REPORT INFORMATION
  Report Type: 
  Country: None (occurrence: None)
  Receive Date: 20120305
  Receipt Date: 20120216
  Transmission Date: 20120608
  Serious: Yes (Other)
  Sender: FDA-Public Use
  Company Number: CHPA2012US003227

PATIENT
  Age: 81 Year
  Sex: Female

DRUGS (7)
  1. GAS-X EXTRA STRENGTH [Suspect]
     Indication: HIATUS HERNIA
     Dosage: 1-2 DF, QD
     Route: 048
     Dates: end: 20120201
  2. EXTRA STRENGTH TYLENOL [Suspect]
     Indication: PAIN
     Dosage: 2 DF, QD
     Dates: end: 20120201
  3. NEXIUM [Concomitant]
  4. ACIPHEX [Concomitant]
  5. BONIVA [Concomitant]
  6. IBUPROFEN (ADVIL) [Concomitant]
     Dosage: 1 DF, QD
  7. NAPROXEN SODIUM [Concomitant]

REACTIONS (3)
  - BLOOD PRESSURE INCREASED [None]
  - DIZZINESS [None]
  - OFF LABEL USE [None]
